FAERS Safety Report 6185971-8 (Version None)
Quarter: 2009Q2

REPORT INFORMATION
  Report Type: 
  Country: None (occurrence: None)
  Receive Date: 20090511
  Receipt Date: 20090506
  Transmission Date: 20091009
  Serious: No
  Sender: FDA-Public Use
  Company Number: US-B.I. PHARMACEUTICALS,INC./RIDGEFIELD-2009-BP-05730BP

PATIENT
  Sex: Female

DRUGS (17)
  1. SPIRIVA [Suspect]
     Indication: ASTHMA
     Dosage: 18MCG
     Route: 055
     Dates: start: 20060101, end: 20090505
  2. MOBIC [Concomitant]
     Indication: ARTHRITIS
     Dosage: 15MG
     Route: 048
     Dates: start: 20040101
  3. METFORMIN HCL [Concomitant]
     Indication: DIABETES MELLITUS
     Dosage: 1000MG
     Route: 048
     Dates: start: 19960101
  4. HYDROCODONE BITARTRATE [Concomitant]
     Indication: ARTHRITIS
     Route: 048
     Dates: start: 20040101
  5. NASONEX [Concomitant]
     Indication: MULTIPLE ALLERGIES
     Route: 045
     Dates: start: 20070101
  6. NASONEX [Concomitant]
     Indication: ASTHMA
  7. ALLEGRA [Concomitant]
     Indication: MULTIPLE ALLERGIES
     Dosage: 180MG
     Route: 048
     Dates: start: 20070101
  8. PRILOSEC [Concomitant]
     Indication: HIATUS HERNIA
     Dosage: 20MG
     Route: 048
     Dates: start: 19990101
  9. PRILOSEC [Concomitant]
     Indication: GASTROOESOPHAGEAL REFLUX DISEASE
  10. XOPENEX [Concomitant]
     Indication: ASTHMA
     Route: 055
  11. FLOMACORT [Concomitant]
     Indication: ASTHMA
     Route: 055
  12. UNIVASC [Concomitant]
     Indication: HYPERTENSION
     Dosage: 15MG
     Route: 048
     Dates: start: 19960101
  13. CLONIDINE [Concomitant]
     Indication: HYPERTENSION
     Dosage: .1MG
     Route: 048
     Dates: start: 19960101
  14. VERAPAMIL [Concomitant]
     Indication: HYPERTENSION
     Dosage: 400MG
     Route: 048
     Dates: start: 19960101
  15. LIPITOR [Concomitant]
     Indication: BLOOD CHOLESTEROL INCREASED
     Dosage: 20MG
     Route: 048
     Dates: start: 19960101
  16. SINGULAIR [Concomitant]
     Indication: ASTHMA
     Dosage: 10MG
     Route: 048
     Dates: start: 19960101
  17. ROBAXIN [Concomitant]
     Indication: ARTHRITIS
     Dates: start: 20040101

REACTIONS (2)
  - EYE HAEMORRHAGE [None]
  - VISUAL IMPAIRMENT [None]
